FAERS Safety Report 4428094-8 (Version None)
Quarter: 2004Q3

REPORT INFORMATION
  Report Type: 
  Country: None (occurrence: None)
  Receive Date: 20040813
  Receipt Date: 20040803
  Transmission Date: 20050211
  Serious: Yes (Other)
  Sender: FDA-Public Use
  Company Number: 2004053486

PATIENT

DRUGS (7)
  1. NEURONTIN [Suspect]
     Indication: ILL-DEFINED DISORDER
  2. CELECOXIB (CELECOXIB) [Suspect]
     Indication: ILL-DEFINED DISORDER
  3. MORPHINE SULFATE [Suspect]
     Indication: ILL-DEFINED DISORDER
  4. CARISOPRODOL [Suspect]
     Indication: ILL-DEFINED DISORDER
  5. NAPROXEN [Suspect]
     Indication: ILL-DEFINED DISORDER
  6. ROFECOXIB [Suspect]
     Indication: ILL-DEFINED DISORDER
  7. DEXTROPRPPOXYPHENE (DEXTROPRPPOXYPHENE0 [Concomitant]

REACTIONS (2)
  - ARTHRALGIA [None]
  - PAIN IN EXTREMITY [None]
